FAERS Safety Report 25359919 (Version 1)
Quarter: 2025Q2

REPORT INFORMATION
  Report Type: Report from Study
  Country: BR (occurrence: BR)
  Receive Date: 20250526
  Receipt Date: 20250526
  Transmission Date: 20250716
  Serious: Yes (Other)
  Sender: JOHNSON AND JOHNSON
  Company Number: BR-JNJFOC-20250524722

PATIENT
  Age: 59 Year
  Sex: Female
  Weight: 97 kg

DRUGS (3)
  1. INFLIXIMAB [Suspect]
     Active Substance: INFLIXIMAB
     Indication: Psoriatic arthropathy
     Route: 041
     Dates: start: 20250320
  2. INFLIXIMAB [Suspect]
     Active Substance: INFLIXIMAB
     Indication: Psoriatic arthropathy
     Route: 041
     Dates: start: 20250320
  3. INFLIXIMAB [Suspect]
     Active Substance: INFLIXIMAB
     Indication: Ankylosing spondylitis

REACTIONS (8)
  - Retroperitoneal cancer [Unknown]
  - Pain in extremity [Recovered/Resolved]
  - Swelling [Recovered/Resolved]
  - Visual impairment [Unknown]
  - Hypoacusis [Unknown]
  - COVID-19 [Unknown]
  - Memory impairment [Unknown]
  - Inappropriate schedule of product administration [Unknown]
